FAERS Safety Report 12505872 (Version 2)
Quarter: 2016Q3

REPORT INFORMATION
  Report Type: Spontaneous
  Country: ES (occurrence: ES)
  Receive Date: 20160628
  Receipt Date: 20160719
  Transmission Date: 20161109
  Serious: Yes (Hospitalization, Other)
  Sender: FDA-Public Use
  Company Number: ES-ABBVIE-16K-144-1660332-00

PATIENT
  Age: 45 Year
  Sex: Male

DRUGS (2)
  1. HUMIRA [Suspect]
     Active Substance: ADALIMUMAB
     Indication: ANKYLOSING SPONDYLITIS
     Route: 058
     Dates: start: 20160329, end: 20160614
  2. CEMIDON [Suspect]
     Active Substance: ISONIAZID
     Indication: LATENT TUBERCULOSIS
     Dosage: 300/50 MG
     Route: 048
     Dates: start: 20160219, end: 20160614

REACTIONS (17)
  - Paraesthesia [Not Recovered/Not Resolved]
  - Dysaesthesia [Recovering/Resolving]
  - Carpal tunnel syndrome [Recovering/Resolving]
  - Gait disturbance [Recovering/Resolving]
  - Clumsiness [Recovering/Resolving]
  - Hypoaesthesia [Unknown]
  - Asthenia [Recovering/Resolving]
  - Hypoaesthesia [Recovering/Resolving]
  - Epstein-Barr virus antibody positive [Unknown]
  - Areflexia [Unknown]
  - Cytomegalovirus test positive [Unknown]
  - Demyelinating polyneuropathy [Recovering/Resolving]
  - Ataxia [Not Recovered/Not Resolved]
  - Fall [Recovering/Resolving]
  - Muscular weakness [Unknown]
  - Decreased vibratory sense [Unknown]
  - Ataxia [Unknown]

NARRATIVE: CASE EVENT DATE: 2016
